FAERS Safety Report 19377265 (Version 1)
Quarter: 2021Q2

REPORT INFORMATION
  Report Type: Spontaneous
  Country: US (occurrence: US)
  Receive Date: 20210604
  Receipt Date: 20210604
  Transmission Date: 20210717
  Serious: Yes (Other)
  Sender: FDA-Public Use
  Company Number: US-TOPROL-2021000106

PATIENT
  Age: 73 Year
  Sex: Female
  Weight: 48.1 kg

DRUGS (4)
  1. REMODULIN [Suspect]
     Active Substance: TREPROSTINIL
     Dosage: 1.0 MG/ML, CONTINUING, IV DRIP
     Route: 042
     Dates: start: 20200608
  2. REMODULIN [Suspect]
     Active Substance: TREPROSTINIL
     Dosage: CONTINUING, IV
     Route: 042
  3. REMODULIN [Suspect]
     Active Substance: TREPROSTINIL
     Dosage: CONTINUING, IV
     Route: 042
  4. TOPROL XL [Suspect]
     Active Substance: METOPROLOL SUCCINATE
     Route: 065

REACTIONS (9)
  - Arthralgia [Unknown]
  - Choking [Unknown]
  - Scleroderma [Unknown]
  - Dysphagia [Unknown]
  - Skin disorder [Not Recovered/Not Resolved]
  - Nausea [Unknown]
  - Alopecia [Not Recovered/Not Resolved]
  - Madarosis [Unknown]
  - Nail ridging [Not Recovered/Not Resolved]

NARRATIVE: CASE EVENT DATE: 202006
